FAERS Safety Report 8381209-1 (Version None)
Quarter: 2012Q2

REPORT INFORMATION
  Report Type: 
  Country: None (occurrence: None)
  Receive Date: 20120523
  Receipt Date: 20120515
  Transmission Date: 20120825
  Serious: Yes (Other)
  Sender: FDA-Public Use
  Company Number: US-JNJFOC-20120313818

PATIENT
  Sex: Female
  Weight: 49.9 kg

DRUGS (5)
  1. COUMADIN [Concomitant]
     Indication: HEART RATE IRREGULAR
     Dosage: MONDAY, WEDNESAY, FRIDAY
     Route: 065
     Dates: start: 20070101
  2. COUMADIN [Concomitant]
     Dosage: SATURDAY, SUNDAY, TUESDAY, THURSDAY
     Route: 065
     Dates: start: 20070101
  3. SYNTHROID [Concomitant]
     Indication: THYROID DISORDER
     Dates: start: 19700101
  4. EXTRA STRENGTH TYLENOL PM CAPLETS [Suspect]
     Indication: HYPERSOMNIA
     Route: 048
     Dates: start: 20120315, end: 20120315
  5. EXTRA STRENGTH TYLENOL PM CAPLETS [Suspect]
     Dosage: 1 CAPLET THE FIRST 2 NIGHTS, 2 CAPLETS A FEW NIGHTS LATER.
     Route: 048
     Dates: start: 20120313, end: 20120314

REACTIONS (5)
  - DRUG INEFFECTIVE [None]
  - CONTRAINDICATION TO MEDICAL TREATMENT [None]
  - HYPERTENSION [None]
  - DIZZINESS [None]
  - MALAISE [None]
